FAERS Safety Report 14699868 (Version 1)
Quarter: 2018Q1

REPORT INFORMATION
  Report Type: Spontaneous
  Country: FR (occurrence: FR)
  Receive Date: 20180330
  Receipt Date: 20180330
  Transmission Date: 20180509
  Serious: Yes (Life-Threatening)
  Sender: FDA-Public Use
  Company Number: FR-PFIZER INC-2018129738

PATIENT
  Age: 60 Year
  Sex: Male
  Weight: 54 kg

DRUGS (5)
  1. ALPRAZOLAM. [Suspect]
     Active Substance: ALPRAZOLAM
     Indication: ANXIETY
     Dosage: 0.75 MG, UNK
  2. METHADONE AP HP [Suspect]
     Active Substance: METHADONE HYDROCHLORIDE
     Indication: PRODUCT SUBSTITUTION
     Dosage: 70 MG, UNK
     Route: 048
  3. THERALENE [Suspect]
     Active Substance: TRIMEPRAZINE
     Indication: INSOMNIA
     Dosage: 50 GTT, UNK (DOSE - DRP)
  4. VALIUM [Suspect]
     Active Substance: DIAZEPAM
     Dosage: UNK
     Route: 048
  5. IMOVANE [Suspect]
     Active Substance: ZOPICLONE
     Indication: INSOMNIA
     Dosage: 1 DF (7.5 MG), UNK
     Route: 048

REACTIONS (3)
  - Coma [Recovered/Resolved]
  - Hypothermia [Recovered/Resolved]
  - Hypercapnia [Recovered/Resolved]

NARRATIVE: CASE EVENT DATE: 20170422
